FAERS Safety Report 19761623 (Version 1)
Quarter: 2021Q3

REPORT INFORMATION
  Report Type: Spontaneous
  Country: US (occurrence: US)
  Receive Date: 20210828
  Receipt Date: 20210828
  Transmission Date: 20211014
  Serious: Yes (Death)
  Sender: FDA-Public Use
  Company Number: None

PATIENT
  Age: 61 Year
  Sex: Male
  Weight: 147 kg

DRUGS (1)
  1. TRABECTEDIN [Suspect]
     Active Substance: TRABECTEDIN
     Indication: MYXOID LIPOSARCOMA
     Dates: start: 20210720, end: 20210810

REACTIONS (11)
  - Acute kidney injury [None]
  - Transaminases increased [None]
  - Tumour lysis syndrome [None]
  - Rhabdomyolysis [None]
  - Multiple organ dysfunction syndrome [None]
  - Troponin increased [None]
  - Encephalopathy [None]
  - Pancytopenia [None]
  - Shock [None]
  - Ejection fraction decreased [None]
  - Hypoxia [None]

NARRATIVE: CASE EVENT DATE: 20210818
